FAERS Safety Report 9997727 (Version 1)
Quarter: 2014Q1

REPORT INFORMATION
  Report Type: Spontaneous
  Country: US (occurrence: US)
  Receive Date: 20140311
  Receipt Date: 20140311
  Transmission Date: 20141002
  Serious: No
  Sender: FDA-Public Use
  Company Number: US-PFIZER INC-2014067410

PATIENT
  Age: 70 Year
  Sex: Male

DRUGS (4)
  1. SUTENT [Suspect]
     Indication: GASTROINTESTINAL CARCINOMA
     Dosage: UNK
     Dates: start: 20140217
  2. AMLODIPINE BESYLATE [Concomitant]
     Dosage: UNK
  3. CIPROFLOXACIN HCL [Concomitant]
     Dosage: UNK
  4. DOXAZOSIN MESILATE [Concomitant]
     Dosage: UNK

REACTIONS (2)
  - Diarrhoea [Unknown]
  - Dysgeusia [Unknown]
